FAERS Safety Report 5557620-0 (Version None)
Quarter: 2007Q4

REPORT INFORMATION
  Report Type: 
  Country: None (occurrence: None)
  Receive Date: 20071214
  Receipt Date: 20071206
  Transmission Date: 20080405
  Serious: Yes (Life-Threatening)
  Sender: FDA-Public Use
  Company Number: B0497081A

PATIENT
  Age: 77 Year
  Sex: Male
  Weight: 66.3 kg

DRUGS (1)
  1. DUTASTERIDE [Suspect]
     Indication: BENIGN PROSTATIC HYPERPLASIA
     Dosage: 1CAP PER DAY
     Dates: start: 20041014

REACTIONS (1)
  - PROSTATE CANCER STAGE I [None]
